FAERS Safety Report 9800199 (Version 3)
Quarter: 2014Q1

REPORT INFORMATION
  Report Type: Spontaneous
  Country: IT (occurrence: IT)
  Receive Date: 20140106
  Receipt Date: 20140304
  Transmission Date: 20141002
  Serious: Yes (Death)
  Sender: FDA-Public Use
  Company Number: PHHY2013IT153760

PATIENT
  Age: 89 Year
  Sex: Female

DRUGS (15)
  1. TICLOPIDINE [Suspect]
     Indication: THROMBOSIS PROPHYLAXIS
     Dosage: 500 MG, QD
     Route: 048
     Dates: start: 20120101, end: 20130424
  2. TORA-DOL [Suspect]
     Indication: PAIN
     Dosage: 1 DF, QD
     Route: 042
     Dates: start: 20130425, end: 20130427
  3. TORA-DOL [Suspect]
     Dosage: 1 DF
     Route: 042
     Dates: start: 20130501, end: 20130501
  4. TORA-DOL [Suspect]
     Dosage: 1 DF,
     Route: 042
     Dates: start: 20130504, end: 20130504
  5. CLEXANE [Suspect]
     Indication: THROMBOSIS PROPHYLAXIS
     Dosage: 1 IU, DQ
     Route: 058
     Dates: start: 20130424, end: 20130505
  6. TAVANIC [Concomitant]
     Indication: URINARY TRACT INFECTION
     Dosage: 1 DF
     Route: 042
     Dates: start: 20130430, end: 20130506
  7. TRIATEC [Concomitant]
     Indication: HYPERTENSION
     Dosage: 1 DF, UNK
     Route: 048
  8. ZYLORIC [Concomitant]
     Dosage: 0.5 DF, UNK
     Route: 048
  9. NOVONORM [Concomitant]
     Indication: DIABETES MELLITUS
     Dosage: 2.5 DF
     Dates: start: 20130101, end: 20130430
  10. LASIX [Concomitant]
     Indication: HYPERTENSION
  11. TORVAST [Concomitant]
  12. ROCALTROL [Concomitant]
     Indication: OSTEOPOROSIS
  13. HALCION [Concomitant]
  14. ADALAT CRONO [Concomitant]
     Dosage: 1 DF
  15. BISOPROLOL [Concomitant]
     Indication: CARDIAC FAILURE
     Dosage: 1.25 MG

REACTIONS (6)
  - Hypotension [Fatal]
  - Gastric ulcer haemorrhage [Fatal]
  - Anaemia [Fatal]
  - Haematemesis [Fatal]
  - Melaena [Fatal]
  - Medication error [Fatal]
